FAERS Safety Report 15395644 (Version 1)
Quarter: 2018Q3

REPORT INFORMATION
  Report Type: Spontaneous
  Country: US (occurrence: US)
  Receive Date: 20180912
  Receipt Date: 20180912
  Transmission Date: 20181010
  Serious: Yes (Disabling)
  Sender: FDA-Public Use
  Company Number: None

PATIENT
  Age: 52 Year
  Sex: Female
  Weight: 85.5 kg

DRUGS (17)
  1. AIMOVIG [Suspect]
     Active Substance: ERENUMAB-AOOE
     Indication: MIGRAINE PROPHYLAXIS
     Dosage: ?          OTHER FREQUENCY:ONCE A MONTH;?
     Route: 058
     Dates: start: 20180628, end: 20180828
  2. EXEXOR XR [Concomitant]
  3. SYNTHROID [Concomitant]
     Active Substance: LEVOTHYROXINE SODIUM
  4. NEURONTIN [Concomitant]
     Active Substance: GABAPENTIN
  5. MULTIPLE VITAMIN WITH IRON [Concomitant]
  6. MAGNESIUM OXIDE. [Concomitant]
     Active Substance: MAGNESIUM OXIDE
  7. KLONOPIN [Concomitant]
     Active Substance: CLONAZEPAM
  8. ZYRTEC [Concomitant]
     Active Substance: CETIRIZINE HYDROCHLORIDE
  9. COQ10 [Concomitant]
     Active Substance: UBIDECARENONE
  10. MAXALT?MLT [Concomitant]
     Active Substance: RIZATRIPTAN BENZOATE
  11. ZOCOR [Concomitant]
     Active Substance: SIMVASTATIN
  12. FIORICET WITH CODEINE [Concomitant]
     Active Substance: ACETAMINOPHEN\BUTALBITAL\CAFFEINE\CODEINE PHOSPHATE
  13. CALCIUM WITH D [Concomitant]
     Active Substance: CALCIUM\VITAMIN D
  14. TOPAMAX [Concomitant]
     Active Substance: TOPIRAMATE
  15. KEPPRA [Concomitant]
     Active Substance: LEVETIRACETAM
  16. ZOFRAN ODT [Concomitant]
     Active Substance: ONDANSETRON HYDROCHLORIDE
  17. VITAMIN C [Concomitant]
     Active Substance: ASCORBIC ACID

REACTIONS (4)
  - Cough [None]
  - Abdominal discomfort [None]
  - Nasopharyngitis [None]
  - Flatulence [None]

NARRATIVE: CASE EVENT DATE: 20180718
